FAERS Safety Report 8858845 (Version 2)
Quarter: 2013Q1

REPORT INFORMATION
  Report Type: Spontaneous
  Country: US (occurrence: US)
  Receive Date: 20121024
  Receipt Date: 20130325
  Transmission Date: 20140127
  Serious: Yes (Hospitalization, Other)
  Sender: FDA-Public Use
  Company Number: US-JNJFOC-20121011372

PATIENT
  Age: 69 Year
  Sex: Male
  Weight: 99.79 kg

DRUGS (6)
  1. EXTRA STRENGTH TYLENOL RAPID RELEASE [Suspect]
     Indication: INFLUENZA
     Dosage: 500MG/CAPLET, 2 CAPLETS, FOR YEARS AS NEEDED
     Route: 048
     Dates: end: 20120331
  2. WARFARIN [Concomitant]
     Indication: ANTICOAGULANT THERAPY
     Route: 065
     Dates: start: 20120331
  3. ASPIRIN [Concomitant]
     Indication: ANTICOAGULANT THERAPY
     Route: 065
     Dates: start: 20120331
  4. QUINAPRIL [Concomitant]
     Indication: BLOOD PRESSURE
     Route: 065
     Dates: start: 20120331
  5. AMIODARONE [Concomitant]
     Indication: HEART RATE
     Route: 065
     Dates: start: 20120331
  6. AMIODARONE [Concomitant]
     Indication: HEART RATE
     Route: 065
     Dates: start: 20120331

REACTIONS (3)
  - Atrial fibrillation [Recovered/Resolved]
  - Weight decreased [Unknown]
  - Product quality issue [None]
